FAERS Safety Report 23390846 (Version 1)
Quarter: 2024Q1

REPORT INFORMATION
  Report Type: Spontaneous
  Country: US (occurrence: US)
  Receive Date: 20240111
  Receipt Date: 20240111
  Transmission Date: 20240410
  Serious: No
  Sender: FDA-Public Use
  Company Number: US-FERRINGPH-2023FE05276

PATIENT
  Age: 72 Year
  Sex: Male

DRUGS (1)
  1. ADSTILADRIN [Suspect]
     Active Substance: NADOFARAGENE FIRADENOVEC-VNCG
     Indication: Neoplasm malignant
     Dosage: UNK
     Route: 065
     Dates: start: 20231020

REACTIONS (4)
  - Nocturia [Unknown]
  - Influenza like illness [Unknown]
  - Pain [Unknown]
  - Dysuria [Unknown]

NARRATIVE: CASE EVENT DATE: 20231020
